FAERS Safety Report 7224799-4 (Version None)
Quarter: 2011Q1

REPORT INFORMATION
  Report Type: 
  Country: None (occurrence: None)
  Receive Date: 20110113
  Receipt Date: 20101231
  Transmission Date: 20110831
  Serious: Yes (Death, Hospitalization)
  Sender: FDA-Public Use
  Company Number: US-CELGENEUS-163-21880-10091920

PATIENT
  Sex: Female

DRUGS (20)
  1. VERAMYST [Concomitant]
     Route: 045
  2. PRILOSEC [Concomitant]
     Route: 048
  3. CATAPRES [Concomitant]
     Route: 048
  4. REVLIMID [Suspect]
     Indication: MULTIPLE MYELOMA
     Route: 048
     Dates: start: 20100625, end: 20100101
  5. ASPIRIN [Concomitant]
     Route: 048
  6. ZESTRIL [Concomitant]
     Route: 048
  7. M.V.I. [Concomitant]
     Route: 048
  8. MUCINEX [Concomitant]
     Route: 048
  9. LIPITOR [Concomitant]
     Route: 048
  10. VITAMIN B-12 [Concomitant]
     Route: 048
  11. ARTIFICIAL TEARS [Concomitant]
     Route: 065
  12. AVELOX [Concomitant]
     Route: 048
  13. FEOSOL [Concomitant]
     Route: 048
  14. COLACE [Concomitant]
     Route: 048
  15. ZOFRAN [Concomitant]
     Route: 048
  16. COREG [Concomitant]
     Route: 048
  17. LANTUS [Concomitant]
     Dosage: 60 UNITS
     Route: 058
  18. NOVOLOG [Concomitant]
     Route: 058
  19. EVOXAC [Concomitant]
     Route: 048
  20. LIDODERM [Concomitant]
     Route: 062

REACTIONS (4)
  - CARDIO-RESPIRATORY ARREST [None]
  - SEPTIC SHOCK [None]
  - BACK PAIN [None]
  - CLOSTRIDIUM DIFFICILE COLITIS [None]
